FAERS Safety Report 9629461 (Version 1)
Quarter: 2013Q4

REPORT INFORMATION
  Report Type: Spontaneous
  Country: FR (occurrence: FR)
  Receive Date: 20131017
  Receipt Date: 20131017
  Transmission Date: 20140711
  Serious: Yes (Other)
  Sender: FDA-Public Use
  Company Number: FR-VERTEX PHARMACEUTICALS INC-2013-010411

PATIENT
  Age: 64 Year
  Sex: Female

DRUGS (3)
  1. INCIVO [Suspect]
     Indication: HEPATITIS C
     Dosage: 750 MG, TID
     Route: 048
     Dates: start: 20120411, end: 20120704
  2. PEGASYS [Suspect]
     Indication: HEPATITIS C
     Dosage: 180 ?G, QW
     Route: 065
     Dates: start: 20120411
  3. COPEGUS [Suspect]
     Indication: HEPATITIS C
     Dosage: 1200 MG, QD
     Route: 065
     Dates: start: 20120411

REACTIONS (1)
  - Neutropenia [Recovered/Resolved]
